FAERS Safety Report 5028668-X (Version None)
Quarter: 2006Q2

REPORT INFORMATION
  Report Type: 
  Country: None (occurrence: None)
  Receive Date: 20060619
  Receipt Date: 20060609
  Transmission Date: 20061013
  Serious: Yes (Other)
  Sender: FDA-Public Use
  Company Number: PHBS2006JP08798

PATIENT
  Age: 15 Year

DRUGS (1)
  1. RITALIN [Suspect]
     Indication: ATTENTION DEFICIT/HYPERACTIVITY DISORDER
     Dosage: 15 MG/D
     Route: 048

REACTIONS (3)
  - ATRIAL HYPERTROPHY [None]
  - HALLUCINATION [None]
  - VENTRICULAR HYPERTROPHY [None]
